FAERS Safety Report 9953716 (Version 1)
Quarter: 2014Q1

REPORT INFORMATION
  Report Type: Spontaneous
  Country: US (occurrence: US)
  Receive Date: 20140304
  Receipt Date: 20140304
  Transmission Date: 20141002
  Serious: No
  Sender: FDA-Public Use
  Company Number: US-AMGEN-USASP2013072628

PATIENT
  Age: 63 Year
  Sex: Female
  Weight: 57.6 kg

DRUGS (11)
  1. ENBREL [Suspect]
     Indication: PRODUCT USED FOR UNKNOWN INDICATION
     Dosage: 50 MG, QWK
     Route: 058
  2. METHOTREXATE [Concomitant]
     Dosage: 2.5 MG, UNK
  3. PREDNISONE [Concomitant]
     Dosage: 5 MG, UNK
  4. ZYRTEC [Concomitant]
     Dosage: 5 MG, UNK
  5. BACITRACIN [Concomitant]
     Dosage: UNK
     Route: 047
  6. VITAMIN E                          /00110501/ [Concomitant]
     Dosage: 1000 UNIT, UNK
  7. LEVOTHYROXIN [Concomitant]
     Dosage: 100 MUG, UNK
  8. CALCIUM CITRATE [Concomitant]
     Dosage: 200 MG, UNK
  9. FISH OIL [Concomitant]
     Dosage: UNK
  10. MULTIVITAMINS, PLAIN [Concomitant]
     Dosage: UNK
  11. FOLIC ACID [Concomitant]
     Dosage: 20 MG, UNK

REACTIONS (2)
  - Oedema peripheral [Unknown]
  - Blister [Unknown]
